FAERS Safety Report 6012876-5 (Version None)
Quarter: 2008Q4

REPORT INFORMATION
  Report Type: 
  Country: None (occurrence: None)
  Receive Date: 20081217
  Receipt Date: 20081210
  Transmission Date: 20090506
  Serious: Yes (Death)
  Sender: FDA-Public Use
  Company Number: 1000001403

PATIENT
  Age: 24 Year
  Sex: Male
  Weight: 112.4921 kg

DRUGS (3)
  1. LEXAPRO [Suspect]
     Indication: BIPOLAR DISORDER
     Dates: start: 20060101, end: 20061201
  2. LEXAPRO [Suspect]
     Indication: SCHIZOPHRENIA
     Dates: start: 20060101, end: 20061201
  3. RISPERDAL [Concomitant]

REACTIONS (10)
  - ABNORMAL BEHAVIOUR [None]
  - BRAIN CONTUSION [None]
  - COMPLETED SUICIDE [None]
  - GUN SHOT WOUND [None]
  - HOMICIDE [None]
  - LEFT VENTRICULAR HYPERTROPHY [None]
  - PULMONARY HAEMORRHAGE [None]
  - SUBARACHNOID HAEMORRHAGE [None]
  - SUICIDAL IDEATION [None]
  - TREATMENT NONCOMPLIANCE [None]
